FAERS Safety Report 6379365-X (Version None)
Quarter: 2009Q3

REPORT INFORMATION
  Report Type: 
  Country: None (occurrence: None)
  Receive Date: 20090923
  Receipt Date: 20090923
  Transmission Date: 20100115
  Serious: Yes (Hospitalization)
  Sender: FDA-Public Use
  Company Number: None

PATIENT
  Age: 58 Year
  Sex: Male
  Weight: 73 kg

DRUGS (7)
  1. HEPARIN [Suspect]
     Indication: THROMBOSIS PROPHYLAXIS
     Dosage: 1500IM, TID, SUBQ
     Route: 058
  2. PAROXETINE [Concomitant]
  3. ACETAMINOPHEN [Concomitant]
  4. LANSOPRAZOLE [Concomitant]
  5. BUPIVACAINE  PCEA [Concomitant]
  6. SULFAMETH TRIMETHOPRIM INSULIN [Concomitant]
  7. METHYLPREDNISOLONE [Concomitant]

REACTIONS (1)
  - HEPARIN-INDUCED THROMBOCYTOPENIA [None]
